FAERS Safety Report 5073688-2 (Version None)
Quarter: 2006Q3

REPORT INFORMATION
  Report Type: 
  Country: None (occurrence: None)
  Receive Date: 20060808
  Receipt Date: 20050119
  Transmission Date: 20061208
  Serious: No
  Sender: FDA-Public Use
  Company Number: US-AMGEN-KDL109222

PATIENT
  Age: 66 Year
  Sex: Female

DRUGS (1)
  1. PROCRIT [Suspect]
     Indication: RENAL FAILURE CHRONIC
     Dates: start: 20031101

REACTIONS (2)
  - LEUKOCYTOCLASTIC VASCULITIS [None]
  - RASH PRURITIC [None]
